FAERS Safety Report 6814046-7 (Version None)
Quarter: 2010Q3

REPORT INFORMATION
  Report Type: 
  Country: None (occurrence: None)
  Receive Date: 20100702
  Receipt Date: 20100625
  Transmission Date: 20110219
  Serious: Yes (Hospitalization)
  Sender: FDA-Public Use
  Company Number: FR-ASTRAZENECA-2010SE12122

PATIENT
  Age: 479 Day
  Sex: Male

DRUGS (4)
  1. EMLA [Suspect]
     Indication: LOCAL ANAESTHESIA
     Dosage: FOUR PATCHES
     Route: 061
     Dates: start: 20091119, end: 20091119
  2. LARGACTIL [Suspect]
     Indication: SEDATIVE THERAPY
     Route: 042
     Dates: start: 20091119, end: 20091119
  3. TEGRETOL [Concomitant]
     Indication: PETIT MAL EPILEPSY
     Route: 048
     Dates: start: 20091002
  4. MEOPA (EQUIMOLAR MIXING OF OXIGEN AND NITROUS OXIDE) [Concomitant]
     Indication: ANALGESIC THERAPY
     Dosage: DURING 15 MIN
     Route: 055
     Dates: start: 20091119, end: 20091119

REACTIONS (1)
  - MALAISE [None]
